FAERS Safety Report 9143123 (Version 2)
Quarter: 2013Q1

REPORT INFORMATION
  Report Type: Spontaneous
  Country: FR (occurrence: FR)
  Receive Date: 20130306
  Receipt Date: 20130318
  Transmission Date: 20140127
  Serious: Yes (Hospitalization)
  Sender: FDA-Public Use
  Company Number: FR-009507513-1302FRA012167

PATIENT
  Age: 30 Year
  Sex: Female
  Weight: 71 kg

DRUGS (2)
  1. ORGALUTRAN [Suspect]
     Indication: IN VITRO FERTILISATION
     Dosage: 0.25 MG, QD
     Route: 058
     Dates: start: 20060918, end: 20060927
  2. GONAL-F [Suspect]
     Indication: IN VITRO FERTILISATION
     Dosage: 1 DF, QD
     Route: 058
     Dates: start: 20060919, end: 20060929

REACTIONS (4)
  - Ascites [Recovered/Resolved]
  - Ovarian hyperstimulation syndrome [Recovered/Resolved]
  - Malaise [Recovered/Resolved]
  - Abdominal pain [Recovered/Resolved]
